FAERS Safety Report 23451039 (Version 1)
Quarter: 2024Q1

REPORT INFORMATION
  Report Type: Spontaneous
  Country: US (occurrence: US)
  Receive Date: 20240129
  Receipt Date: 20240129
  Transmission Date: 20240410
  Serious: No
  Sender: FDA-Public Use
  Company Number: US-JNJFOC-20240154498

PATIENT

DRUGS (2)
  1. MENS ROGAINE EXTRA STRENGTH [Suspect]
     Active Substance: MINOXIDIL
     Indication: Product used for unknown indication
     Route: 061
  2. MENS ROGAINE EXTRA STRENGTH [Suspect]
     Active Substance: MINOXIDIL
     Route: 061

REACTIONS (1)
  - Alopecia [Not Recovered/Not Resolved]
